FAERS Safety Report 8298590-4 (Version None)
Quarter: 2012Q2

REPORT INFORMATION
  Report Type: 
  Country: None (occurrence: None)
  Receive Date: 20120419
  Receipt Date: 20120413
  Transmission Date: 20120825
  Serious: Yes (Hospitalization, Other)
  Sender: FDA-Public Use
  Company Number: JP-B.I. PHARMACEUTICALS,INC./RIDGEFIELD-2012-BP-06977NB

PATIENT
  Sex: Female
  Weight: 56 kg

DRUGS (4)
  1. NEO-MINOPHAGEN C [Concomitant]
     Indication: HEPATITIS C
     Route: 042
     Dates: start: 20110331, end: 20120401
  2. AMARYL [Concomitant]
     Indication: TYPE 2 DIABETES MELLITUS
     Dosage: 1 MG
     Route: 048
     Dates: start: 20110513, end: 20120302
  3. TANATRIL [Concomitant]
     Indication: HYPERTENSION
     Dosage: 10 MG
     Route: 048
     Dates: start: 20110329, end: 20120302
  4. MICARDIS [Suspect]
     Indication: HYPERTENSION
     Dosage: 40 MG
     Route: 048
     Dates: start: 20110329, end: 20120302

REACTIONS (2)
  - LOSS OF CONSCIOUSNESS [None]
  - DELIRIUM [None]
